FAERS Safety Report 25502319 (Version 1)
Quarter: 2025Q3

REPORT INFORMATION
  Report Type: Spontaneous
  Country: CH (occurrence: CH)
  Receive Date: 20250702
  Receipt Date: 20250702
  Transmission Date: 20251021
  Serious: Yes (Hospitalization)
  Sender: SANDOZ
  Company Number: None

PATIENT
  Age: 60 Year
  Sex: Female

DRUGS (7)
  1. VITAMINS [Suspect]
     Active Substance: VITAMINS
     Indication: Product used for unknown indication
     Dosage: 1 DF, QD
     Route: 048
  2. CALCIUM\CHOLECALCIFEROL [Suspect]
     Active Substance: CALCIUM\CHOLECALCIFEROL
     Indication: Hypocalcaemia
     Dosage: 2 DF, THERAPY RECENTLY INTENSIFIED (FROM BEGINNING OF JANUARY 2025); TEMPORARILY SUSPENDED UPON DETE
     Route: 048
     Dates: start: 202501, end: 20250113
  3. THIAMINE HYDROCHLORIDE [Concomitant]
     Active Substance: THIAMINE HYDROCHLORIDE
     Indication: Product used for unknown indication
     Dosage: 300 MG, QD
     Route: 048
  4. MAGNESIUM [Concomitant]
     Active Substance: MAGNESIUM
     Indication: Product used for unknown indication
     Dosage: L 300 MG 1XDIE.
     Route: 048
  5. ROCALTROL [Concomitant]
     Active Substance: CALCITRIOL
     Indication: Hypocalcaemia
     Dosage: THERAPY RECENTLY INTENSIFIED (FROM BEGINNING OF JANUARY 2025); TEMPORARILY SUSPENDED UPON DETECTION
     Route: 048
     Dates: start: 202501, end: 20250113
  6. TIROSINT [Concomitant]
     Active Substance: LEVOTHYROXINE SODIUM
     Indication: Product used for unknown indication
     Route: 048
  7. TIROSINT [Concomitant]
     Active Substance: LEVOTHYROXINE SODIUM
     Dosage: 3 TIMES A WEEK
     Route: 048

REACTIONS (3)
  - Acute kidney injury [Recovering/Resolving]
  - Nephrogenic diabetes insipidus [Unknown]
  - Hypercalcaemia [Recovered/Resolved]

NARRATIVE: CASE EVENT DATE: 20250113
